FAERS Safety Report 7809297-9 (Version None)
Quarter: 2011Q4

REPORT INFORMATION
  Report Type: 
  Country: None (occurrence: None)
  Receive Date: 20111012
  Receipt Date: 20110927
  Transmission Date: 20120403
  Serious: Yes (Death, Hospitalization)
  Sender: FDA-Public Use
  Company Number: DE-ENDO PHARMACEUTICALS INC.-VANT20110049

PATIENT
  Sex: Male
  Weight: 55 kg

DRUGS (8)
  1. PAIN MANAGEMENT [Concomitant]
     Dosage: UNKNOWN
     Route: 065
     Dates: start: 20110501, end: 20110801
  2. FENTANYL [Concomitant]
     Indication: PALLIATIVE CARE
     Route: 065
     Dates: end: 20110801
  3. PAMORELIN [Concomitant]
     Indication: PRODUCT USED FOR UNKNOWN INDICATION
     Dosage: 11.25 MG
     Route: 065
     Dates: start: 20091101, end: 20110801
  4. VANTAS [Suspect]
     Indication: PROSTATE CANCER
     Route: 058
     Dates: start: 20110729, end: 20110823
  5. MARCUMAR [Concomitant]
     Indication: ANTICOAGULANT THERAPY
     Dosage: UNKNOWN
     Route: 065
     Dates: end: 20110801
  6. BICALUTAMIDE [Concomitant]
     Dosage: UNKNOWN
     Route: 065
     Dates: start: 20110501, end: 20110801
  7. BICALUTAMIDE [Concomitant]
     Indication: PRODUCT USED FOR UNKNOWN INDICATION
     Dosage: UNKNOWN
     Route: 065
     Dates: start: 20091101
  8. PAIN MANAGEMENT [Concomitant]
     Indication: PALLIATIVE CARE
     Dosage: UNKNOWN
     Route: 065

REACTIONS (9)
  - CARDIOVASCULAR INSUFFICIENCY [None]
  - DECREASED APPETITE [None]
  - NEOPLASM PROGRESSION [None]
  - WEIGHT DECREASED [None]
  - PROSTATE CANCER [None]
  - BONE PAIN [None]
  - GENERAL PHYSICAL HEALTH DETERIORATION [None]
  - CONDITION AGGRAVATED [None]
  - REFUSAL OF TREATMENT BY PATIENT [None]
